FAERS Safety Report 12493593 (Version 3)
Quarter: 2016Q3

REPORT INFORMATION
  Report Type: Spontaneous
  Country: US (occurrence: US)
  Receive Date: 20160623
  Receipt Date: 20160830
  Transmission Date: 20161109
  Serious: Yes (Other)
  Sender: FDA-Public Use
  Company Number: US-TEVA-669086USA

PATIENT
  Age: 36 Year
  Sex: Female

DRUGS (1)
  1. ZECUITY [Suspect]
     Active Substance: SUMATRIPTAN SUCCINATE
     Route: 062
     Dates: start: 201606

REACTIONS (8)
  - Application site erythema [Unknown]
  - Application site paraesthesia [Unknown]
  - Application site exfoliation [Not Recovered/Not Resolved]
  - Application site pruritus [Unknown]
  - Product adhesion issue [Unknown]
  - Application site burn [Recovered/Resolved]
  - Application site discolouration [Unknown]
  - Application site pain [Unknown]

NARRATIVE: CASE EVENT DATE: 201606
